FAERS Safety Report 4673079-X (Version None)
Quarter: 2005Q2

REPORT INFORMATION
  Report Type: 
  Country: None (occurrence: None)
  Receive Date: 20050523
  Receipt Date: 20050511
  Transmission Date: 20051028
  Serious: Yes (Other)
  Sender: FDA-Public Use
  Company Number: 2005BI005075

PATIENT
  Age: 36 Year
  Sex: Male
  Weight: 72 kg

DRUGS (26)
  1. ZEVALIN [Suspect]
     Indication: NON-HODGKIN'S LYMPHOMA
     Dosage: SEE IMAGE
     Route: 042
     Dates: start: 20040901, end: 20040901
  2. ZEVALIN [Suspect]
     Indication: NON-HODGKIN'S LYMPHOMA
     Dosage: SEE IMAGE
     Route: 042
     Dates: start: 20040930, end: 20040930
  3. ZEVALIN [Suspect]
     Indication: NON-HODGKIN'S LYMPHOMA
     Dosage: SEE IMAGE
     Route: 042
     Dates: start: 20040930, end: 20040930
  4. CYCLOPHOSPHAMIDE [Concomitant]
  5. DOXORUBICIN [Concomitant]
  6. VINCRISTINE [Concomitant]
  7. ETOPOSIDE [Concomitant]
  8. PREDNISONE TAB [Concomitant]
  9. RITUXAN [Concomitant]
  10. DEXAMETHASONE [Concomitant]
  11. CYTARABINE [Concomitant]
  12. CISPLATIN [Concomitant]
  13. CYCLOPHOSPHAMIDE [Concomitant]
  14. METHOTREXATE [Concomitant]
  15. ETOPOSIDE [Concomitant]
  16. CARMUSTINE [Concomitant]
  17. ETOPOSIDE [Concomitant]
  18. CYTARABINE [Concomitant]
  19. METHOTREXATE [Concomitant]
  20. CYCLOPHOSPHAMIDE [Concomitant]
  21. VINCRISTINE [Concomitant]
  22. PREDNISONE TAB [Concomitant]
  23. PIXANTRONE [Concomitant]
  24. ENOXAPARIN SODIUM [Concomitant]
  25. ZEVALIN [Suspect]
     Dosage: 1X; IV
     Route: 042
     Dates: start: 20040930, end: 20040930
  26. ZEVALIN [Suspect]
     Dosage: 28.4 MCI;IX;IV
     Route: 042
     Dates: start: 20040930, end: 20040930

REACTIONS (13)
  - ABDOMINAL PAIN [None]
  - ANAEMIA [None]
  - ARTHRALGIA [None]
  - ARTHRITIS REACTIVE [None]
  - DEEP VEIN THROMBOSIS [None]
  - ILIAC VEIN THROMBOSIS [None]
  - JOINT EFFUSION [None]
  - MALIGNANT NEOPLASM PROGRESSION [None]
  - NON-HODGKIN'S LYMPHOMA [None]
  - PARANEOPLASTIC SYNDROME [None]
  - THROMBOCYTOPENIA [None]
  - THROMBOPHLEBITIS [None]
  - VASCULITIS [None]
